FAERS Safety Report 6141789-3 (Version None)
Quarter: 2009Q2

REPORT INFORMATION
  Report Type: 
  Country: None (occurrence: None)
  Receive Date: 20090402
  Receipt Date: 20081016
  Transmission Date: 20091009
  Serious: No
  Sender: FDA-Public Use
  Company Number: US-ABBOTT-08P-163-0482430-00

PATIENT
  Sex: Female
  Weight: 73.094 kg

DRUGS (3)
  1. LUPRON DEPOT [Suspect]
     Indication: ENDOMETRIOSIS
     Route: 050
     Dates: start: 20080801
  2. ADD BACK THERAPY [Concomitant]
     Indication: DRUG USE FOR UNKNOWN INDICATION
     Dates: start: 20080801
  3. UNSPECIFIED PRESCRIPTION DIET PILL [Concomitant]
     Indication: WEIGHT DECREASED
     Route: 048

REACTIONS (1)
  - INCREASED APPETITE [None]
